FAERS Safety Report 13520958 (Version 2)
Quarter: 2017Q3

REPORT INFORMATION
  Report Type: Spontaneous
  Country: US (occurrence: US)
  Receive Date: 20170508
  Receipt Date: 20170705
  Transmission Date: 20171127
  Serious: No
  Sender: FDA-Public Use
  Company Number: US-JNJFOC-20170334093

PATIENT
  Age: 73 Year
  Sex: Female
  Weight: 74.84 kg

DRUGS (8)
  1. FENTANYL. [Suspect]
     Active Substance: FENTANYL
     Indication: PRODUCT USED FOR UNKNOWN INDICATION
     Route: 065
  2. FENTANYL. [Suspect]
     Active Substance: FENTANYL
     Indication: PRODUCT USED FOR UNKNOWN INDICATION
     Route: 065
  3. POTASSIUM CHLORIDE. [Concomitant]
     Active Substance: POTASSIUM CHLORIDE
     Indication: ROUTINE HEALTH MAINTENANCE
     Route: 065
  4. METOPROLOL TARTRATE. [Concomitant]
     Active Substance: METOPROLOL TARTRATE
     Indication: CARDIAC DISORDER
     Route: 065
     Dates: start: 2000
  5. COLACE [Concomitant]
     Active Substance: DOCUSATE SODIUM
     Indication: CONSTIPATION
     Route: 065
  6. ZOMETA [Concomitant]
     Active Substance: ZOLEDRONIC ACID
     Indication: BONE DISORDER
     Route: 065
     Dates: start: 2009
  7. DILAUDID [Concomitant]
     Active Substance: HYDROMORPHONE HYDROCHLORIDE
     Indication: CANCER PAIN
     Route: 065
     Dates: start: 2009
  8. DURAGESIC [Suspect]
     Active Substance: FENTANYL
     Indication: CANCER PAIN
     Route: 061
     Dates: start: 201603

REACTIONS (5)
  - Product quality issue [Unknown]
  - Underdose [Unknown]
  - Fear [Unknown]
  - Wrong technique in product usage process [Unknown]
  - Product adhesion issue [Unknown]

NARRATIVE: CASE EVENT DATE: 201703
